FAERS Safety Report 7357824-0 (Version None)
Quarter: 2011Q1

REPORT INFORMATION
  Report Type: 
  Country: None (occurrence: None)
  Receive Date: 20110317
  Receipt Date: 20110308
  Transmission Date: 20110831
  Serious: Yes (Other)
  Sender: FDA-Public Use
  Company Number: US-SANOFI-AVENTIS-2010SA029527

PATIENT
  Age: 72 Year
  Sex: Female

DRUGS (9)
  1. PLAVIX [Suspect]
     Route: 048
     Dates: start: 20001106
  2. KAPIDEX [Concomitant]
     Indication: GASTRIC DISORDER
  3. PERCOCET [Suspect]
     Indication: PAIN
     Route: 065
  4. NEURONTIN [Suspect]
     Indication: PAIN
     Route: 065
  5. ALL OTHER THERAPEUTIC PRODUCTS [Concomitant]
  6. PEPCID [Concomitant]
  7. VICODIN [Suspect]
     Indication: PAIN
     Route: 065
  8. DARVOCET-N 100 [Suspect]
     Indication: PAIN
     Route: 065
  9. ASPIRIN [Concomitant]

REACTIONS (10)
  - WHITE BLOOD CELL COUNT DECREASED [None]
  - ASTHENIA [None]
  - ABDOMINAL PAIN [None]
  - ARRHYTHMIA [None]
  - NAUSEA [None]
  - HEPATIC CYST [None]
  - DECREASED APPETITE [None]
  - ABDOMINAL PAIN UPPER [None]
  - CONSTIPATION [None]
  - OSTEOARTHRITIS [None]
